FAERS Safety Report 8222080-8 (Version None)
Quarter: 2012Q1

REPORT INFORMATION
  Report Type: 
  Country: None (occurrence: None)
  Receive Date: 20120320
  Receipt Date: 20120312
  Transmission Date: 20120608
  Serious: Yes (Other)
  Sender: FDA-Public Use
  Company Number: US-US-EMD SERONO, INC.-7118832

PATIENT
  Sex: Female
  Weight: 93 kg

DRUGS (8)
  1. BIRTH CONTROL [Concomitant]
     Indication: POLYCYSTIC OVARIES
  2. REBIF [Suspect]
     Indication: PRODUCT USED FOR UNKNOWN INDICATION
     Route: 058
     Dates: start: 20070413, end: 20111001
  3. SINGULAIR [Concomitant]
     Indication: PRODUCT USED FOR UNKNOWN INDICATION
  4. REBIF [Suspect]
     Route: 058
     Dates: start: 20111227
  5. OMEPRAZOLE [Concomitant]
     Indication: IRRITABLE BOWEL SYNDROME
  6. LORAZEPAM [Concomitant]
     Indication: IDIOPATHIC URTICARIA
  7. ZYZOL [Concomitant]
     Indication: IDIOPATHIC URTICARIA
  8. RANITIDINE [Concomitant]
     Indication: IDIOPATHIC URTICARIA

REACTIONS (3)
  - CHOLELITHIASIS [None]
  - NEPHROLITHIASIS [None]
  - INJECTION SITE URTICARIA [None]
